FAERS Safety Report 4724574-6 (Version None)
Quarter: 2005Q3

REPORT INFORMATION
  Report Type: 
  Country: None (occurrence: None)
  Receive Date: 20050721
  Receipt Date: 20050721
  Transmission Date: 20060218
  Serious: Yes (Life-Threatening, Hospitalization)
  Sender: FDA-Public Use
  Company Number: 2005AD000079

PATIENT
  Age: 56 Year
  Sex: Female

DRUGS (5)
  1. CEPHALEXIN [Suspect]
     Dosage: 500 MG
  2. CALCICHEW [Concomitant]
  3. OMEPRAZOLE [Concomitant]
  4. CYCLIZINE [Concomitant]
  5. PARACETAMOL [Concomitant]

REACTIONS (1)
  - RENAL FAILURE ACUTE [None]
